FAERS Safety Report 7646457-4 (Version None)
Quarter: 2011Q3

REPORT INFORMATION
  Report Type: 
  Country: None (occurrence: None)
  Receive Date: 20110725
  Receipt Date: 20110720
  Transmission Date: 20111222
  Serious: Yes (Death, Hospitalization, Other)
  Sender: FDA-Public Use
  Company Number: 2011SP033923

PATIENT
  Age: 42 Year
  Sex: Female
  Weight: 50 kg

DRUGS (1)
  1. CERAZETTE (DESOGESTREL /00754001/) [Suspect]
     Indication: DRUG THERAPY
     Dosage: ;QD;PO
     Route: 048
     Dates: start: 20110301, end: 20110628

REACTIONS (3)
  - HYPOAESTHESIA [None]
  - CEREBROVASCULAR ACCIDENT [None]
  - THROMBOSIS [None]
